FAERS Safety Report 6034571-9 (Version None)
Quarter: 2009Q1

REPORT INFORMATION
  Report Type: 
  Country: None (occurrence: None)
  Receive Date: 20090112
  Receipt Date: 20090105
  Transmission Date: 20090719
  Serious: Yes (Death)
  Sender: FDA-Public Use
  Company Number: US-GILEAD-2009-0019700

PATIENT
  Sex: Female
  Weight: 97.61 kg

DRUGS (16)
  1. LETAIRIS [Suspect]
     Indication: PULMONARY ARTERIAL HYPERTENSION
     Route: 048
     Dates: start: 20080902
  2. LASIX [Concomitant]
  3. BENICAR [Concomitant]
  4. OXYGEN [Concomitant]
  5. TEMAZEPAM [Concomitant]
  6. PROTONIX [Concomitant]
  7. ROBITUSSIN-DM [Concomitant]
  8. ASTELIN [Concomitant]
  9. FLUTICASONE PROPIONATE [Concomitant]
  10. PROMETHAZINE [Concomitant]
  11. NOVOLOG [Concomitant]
  12. LEVEMIR [Concomitant]
  13. OCEAN [Concomitant]
  14. PROPOXYPHENE HCL AND ACETAMINOPHEN [Concomitant]
  15. CLOTRIMAZOLE 7 [Concomitant]
  16. NITROGLYCERIN [Concomitant]

REACTIONS (1)
  - DEATH [None]
